FAERS Safety Report 9220787 (Version 1)
Quarter: 2013Q2

REPORT INFORMATION
  Report Type: Spontaneous
  Country: DE (occurrence: DE)
  Receive Date: 20130409
  Receipt Date: 20130409
  Transmission Date: 20140414
  Serious: Yes (Other)
  Sender: FDA-Public Use
  Company Number: DE-TEVA-396477GER

PATIENT
  Age: 35 Year
  Sex: Female

DRUGS (8)
  1. LAMOTRIGINE [Suspect]
     Indication: EPILEPSY
     Dosage: 400 MILLIGRAM DAILY;
     Route: 048
     Dates: start: 20110916, end: 20120425
  2. NEOVIN [Concomitant]
     Indication: PROPHYLAXIS OF NEURAL TUBE DEFECT
     Dosage: .4 MILLIGRAM DAILY;
     Route: 048
  3. CELESTAN [Concomitant]
     Indication: MATERNAL THERAPY TO ENHANCE FOETAL LUNG MATURITY
     Route: 030
     Dates: start: 20120228, end: 20120229
  4. UTROGEST [Concomitant]
     Indication: SHORTENED CERVIX
     Dosage: 200 MILLIGRAM DAILY;
     Route: 067
     Dates: start: 20120229, end: 20120320
  5. IBUPROFEN [Concomitant]
     Indication: PAIN
     Route: 048
  6. FRAGMIN P [Concomitant]
     Indication: THROMBOSIS PROPHYLAXIS
     Route: 058
     Dates: start: 20120229, end: 20120320
  7. NIFEHEXAL [Concomitant]
     Indication: TOCOLYSIS
     Route: 048
     Dates: end: 20120320
  8. TRACTOCILE [Concomitant]
     Indication: TOCOLYSIS
     Route: 042
     Dates: start: 20120229, end: 20120229

REACTIONS (5)
  - Caesarean section [Recovered/Resolved]
  - Gestational diabetes [Recovered/Resolved]
  - Cervical incompetence [Recovered/Resolved]
  - Premature labour [Recovered/Resolved]
  - Exposure during pregnancy [None]
